FAERS Safety Report 4396261-8 (Version None)
Quarter: 2004Q3

REPORT INFORMATION
  Report Type: 
  Country: None (occurrence: None)
  Receive Date: 20040713
  Receipt Date: 20040420
  Transmission Date: 20050211
  Serious: Yes (Other)
  Sender: FDA-Public Use
  Company Number: PHNU2004DE01579

PATIENT
  Age: 65 Year
  Sex: Female
  Weight: 95 kg

DRUGS (6)
  1. LOCOL [Suspect]
     Indication: HYPERLIPIDAEMIA
     Dosage: 80 MG, QD
     Route: 048
     Dates: start: 20030620, end: 20040417
  2. PROTAPHANE [Concomitant]
     Indication: DIABETES MELLITUS
     Dosage: 30 IU, QD
     Route: 058
     Dates: start: 20030215
  3. MICARDIS HCT [Concomitant]
     Indication: HYPERTENSION
     Dosage: 80/12.5
     Dates: start: 20030620
  4. DILATREND [Concomitant]
     Indication: CARDIAC FAILURE
     Dosage: 12.5 MG, QD
     Route: 048
     Dates: start: 20030620
  5. TORSEMIDE [Concomitant]
     Indication: CARDIAC FAILURE
     Dosage: 10 MG, QD
     Route: 048
     Dates: start: 20030606
  6. INSULIN ACTRAPID ^NOVO NORDISK^ [Concomitant]
     Indication: DIABETES MELLITUS
     Dosage: UNK, PRN
     Route: 058
     Dates: start: 20030215

REACTIONS (6)
  - BLOOD GLUCOSE INCREASED [None]
  - DIPLOPIA [None]
  - GAMMA-GLUTAMYLTRANSFERASE INCREASED [None]
  - GLYCOSYLATED HAEMOGLOBIN INCREASED [None]
  - LIPIDS ABNORMAL [None]
  - VITH NERVE DISORDER [None]
